FAERS Safety Report 8022240 (Version 2)
Quarter: 2012Q4

REPORT INFORMATION
  Report Type: 
  Country: US (occurrence: US)
  Receive Date: 20110705
  Receipt Date: 20120829
  Transmission Date: 20130627
  Serious: Yes (Hospitalization, Other)
  Sender: FDA-Public Use
  Company Number: US-ASTRAZENECA-2010SE38059

PATIENT
  Age: 64 Year
  Sex: Female

DRUGS (3)
  1. NEXIUM [Suspect]
     Route: 048
  2. NEXIUM [Suspect]
     Dosage: ONE OR TWO CAPSULE PER DAY
     Route: 048
  3. NEXIUM [Suspect]
     Route: 048

REACTIONS (11)
  - Oesophageal haemorrhage [Unknown]
  - Haemorrhage [Unknown]
  - Gastrointestinal haemorrhage [Unknown]
  - Oesophageal disorder [Unknown]
  - Gastric disorder [Unknown]
  - Oesophagitis [Unknown]
  - Gastrooesophageal sphincter insufficiency [Unknown]
  - Gastrooesophageal reflux disease [Unknown]
  - Drug dose omission [Unknown]
  - Drug effect decreased [Unknown]
  - Drug ineffective [Unknown]
